FAERS Safety Report 9627950 (Version 3)
Quarter: 2013Q4

REPORT INFORMATION
  Report Type: Spontaneous
  Country: PR (occurrence: PR)
  Receive Date: 20131016
  Receipt Date: 20131028
  Transmission Date: 20140711
  Serious: Yes (Hospitalization)
  Sender: FDA-Public Use
  Company Number: PR-BAXTER-2013BAX040005

PATIENT
  Age: 1 Year
  Sex: 0

DRUGS (3)
  1. GAMMAGARD LIQUID [Suspect]
     Indication: KAWASAKI^S DISEASE
     Route: 042
     Dates: start: 20131008, end: 20131008
  2. GAMMAGARD LIQUID [Suspect]
     Route: 042
     Dates: start: 20131009, end: 20131009
  3. ALBUTEROL [Concomitant]
     Indication: PRODUCT USED FOR UNKNOWN INDICATION
     Route: 065

REACTIONS (3)
  - Heart rate increased [Recovered/Resolved]
  - Oedema [Recovered/Resolved]
  - Blood pressure diastolic abnormal [Recovered/Resolved]
